FAERS Safety Report 16342710 (Version 1)
Quarter: 2019Q2

REPORT INFORMATION
  Report Type: Spontaneous
  Country: US (occurrence: US)
  Receive Date: 20190419
  Receipt Date: 20190419
  Transmission Date: 20190711
  Serious: No
  Sender: FDA-Public Use
  Company Number: None

PATIENT
  Age: 33 Year
  Sex: Male

DRUGS (1)
  1. EPCLUSA [Suspect]
     Active Substance: SOFOSBUVIR\VELPATASVIR
     Indication: HEPATITIS C
     Dosage: ?          OTHER DOSE:400-100;?
     Route: 048
     Dates: start: 20190305

REACTIONS (4)
  - Decreased appetite [None]
  - Vomiting [None]
  - Affective disorder [None]
  - Fatigue [None]

NARRATIVE: CASE EVENT DATE: 20190419
